FAERS Safety Report 4959702-0 (Version None)
Quarter: 2006Q1

REPORT INFORMATION
  Report Type: 
  Country: None (occurrence: None)
  Receive Date: 20060327
  Receipt Date: 20060317
  Transmission Date: 20060701
  Serious: Yes (Other)
  Sender: FDA-Public Use
  Company Number: 2006-03-1119

PATIENT
  Age: 20 Year
  Sex: Female

DRUGS (7)
  1. AERIUS (DESLORATADINE) [Suspect]
     Indication: SEASONAL ALLERGY
     Dosage: 5 MG QD* ORAL
     Route: 048
     Dates: start: 20040301, end: 20040101
  2. AERIUS (DESLORATADINE) [Suspect]
     Indication: SEASONAL ALLERGY
     Dosage: 5 MG QD* ORAL
     Route: 048
     Dates: start: 20050301, end: 20050101
  3. AERIUS (DESLORATADINE) [Suspect]
     Indication: SEASONAL ALLERGY
     Dosage: 5 MG QD* ORAL
     Route: 048
     Dates: start: 20060314, end: 20060314
  4. SUXINUTIN [Concomitant]
  5. INJECTABLE CONTRACEPTIVE (NOS) [Concomitant]
  6. ASCORBIC ACID [Concomitant]
  7. LAMICTAL [Concomitant]

REACTIONS (1)
  - EPILEPSY [None]
